FAERS Safety Report 4634922-3 (Version None)
Quarter: 2005Q2

REPORT INFORMATION
  Report Type: 
  Country: None (occurrence: None)
  Receive Date: 20050414
  Receipt Date: 20050404
  Transmission Date: 20051028
  Serious: Yes (Hospitalization)
  Sender: FDA-Public Use
  Company Number: US-JNJFOC-20050106806

PATIENT
  Sex: Male
  Weight: 83.92 kg

DRUGS (7)
  1. RISPERDAL [Suspect]
     Dosage: ONE DOSE
     Route: 049
  2. RISPERDAL [Suspect]
     Route: 049
  3. LITHIUM CARBONATE [Suspect]
     Indication: DRUG THERAPY
     Route: 049
  4. LITHIUM CARBONATE [Suspect]
     Indication: BIPOLAR DISORDER
     Route: 049
  5. KLONAPIN [Concomitant]
     Indication: SLEEP DISORDER THERAPY
     Route: 049
  6. EFFEXOR XR [Concomitant]
     Indication: DEPRESSION
  7. TOPAMAX [Concomitant]
     Indication: DRUG THERAPY

REACTIONS (8)
  - AMNESIA [None]
  - CONFUSIONAL STATE [None]
  - DEHYDRATION [None]
  - MYOCARDIAL INFARCTION [None]
  - NASOPHARYNGITIS [None]
  - NIGHTMARE [None]
  - THERAPEUTIC AGENT TOXICITY [None]
  - URINARY TRACT INFECTION [None]
